APPROVED DRUG PRODUCT: PRAZOSIN HYDROCHLORIDE
Active Ingredient: PRAZOSIN HYDROCHLORIDE
Strength: EQ 5MG BASE
Dosage Form/Route: CAPSULE;ORAL
Application: A210971 | Product #003 | TE Code: AB
Applicant: NOVITIUM PHARMA LLC
Approved: Oct 3, 2018 | RLD: No | RS: No | Type: RX